FAERS Safety Report 7674008-7 (Version None)
Quarter: 2011Q3

REPORT INFORMATION
  Report Type: 
  Country: None (occurrence: None)
  Receive Date: 20110810
  Receipt Date: 20110501
  Transmission Date: 20111222
  Serious: No
  Sender: FDA-Public Use
  Company Number: US-GLAXOSMITHKLINE-A0926139A

PATIENT
  Sex: Female

DRUGS (1)
  1. PAXIL CR [Suspect]
     Indication: ANXIETY
     Route: 065

REACTIONS (5)
  - DRUG EFFECT DECREASED [None]
  - ABNORMAL DREAMS [None]
  - DRUG INEFFECTIVE [None]
  - THINKING ABNORMAL [None]
  - FEELING ABNORMAL [None]
